FAERS Safety Report 8604818-0 (Version None)
Quarter: 2012Q3

REPORT INFORMATION
  Report Type: 
  Country: None (occurrence: None)
  Receive Date: 20120820
  Receipt Date: 20120810
  Transmission Date: 20120928
  Serious: Yes (Hospitalization)
  Sender: FDA-Public Use
  Company Number: US-JNJFOC-20120806574

PATIENT
  Sex: Male
  Weight: 106.14 kg

DRUGS (5)
  1. OXYCONTIN [Concomitant]
     Indication: PAIN
     Route: 048
     Dates: start: 20110101
  2. REMICADE [Suspect]
     Indication: COLITIS ULCERATIVE
     Route: 042
     Dates: start: 20120101
  3. UNKNOWN MEDICATION [Concomitant]
     Indication: HAEMORRHAGE
     Dosage: 4 TABLETS PER DAY
     Route: 048
     Dates: start: 20110101
  4. FENTANYL [Concomitant]
     Indication: PAIN
     Route: 048
     Dates: start: 20120201
  5. UNKNOWN MEDICATION [Concomitant]
     Indication: EATING DISORDER
     Dosage: 4 TABLETS PER DAY
     Route: 048
     Dates: start: 20110101

REACTIONS (2)
  - SKIN DISCOLOURATION [None]
  - DIVERTICULITIS [None]
